FAERS Safety Report 15184060 (Version 4)
Quarter: 2018Q3

REPORT INFORMATION
  Report Type: Report from Study
  Country: None (occurrence: DE)
  Receive Date: 20180723
  Receipt Date: 20180823
  Transmission Date: 20181010
  Serious: Yes (Other)
  Sender: FDA-Public Use
  Company Number: DE-BAUSCH-BL-2018-019767

PATIENT
  Age: 40 Year
  Sex: Female

DRUGS (7)
  1. METOPROLOL. [Suspect]
     Active Substance: METOPROLOL
     Indication: PRODUCT USED FOR UNKNOWN INDICATION
     Dosage: PREGNANCY WEEK 7(PLUS 4) TO 35 (PLUS 3), SALT NOT SPECIFIED, 6 MONTHS 13 DAYS
     Route: 048
     Dates: start: 20130502, end: 20131113
  2. METHYLDOPA. [Suspect]
     Active Substance: METHYLDOPA
     Indication: HYPERTENSION
     Dosage: PREGNANCY WEEK 7(PLUS 4) TO 35 (PLUS 3), 6 MONTHS 13 DAYS
     Route: 048
     Dates: start: 20130502, end: 20131113
  3. METFORMIN HYDROCHLORIDE. [Suspect]
     Active Substance: METFORMIN HYDROCHLORIDE
     Indication: TYPE 2 DIABETES MELLITUS
     Dosage: PREGNANCY WEEK 0 TO 6(PLUS 4), 1 MONTH 16 DAYS 12 HRS
     Route: 048
     Dates: start: 20130310, end: 20130425
  4. LEVOTHYROXINE SODIUM. [Suspect]
     Active Substance: LEVOTHYROXINE SODIUM
     Indication: AUTOIMMUNE THYROIDITIS
     Dosage: PREGNANCY WEEK 0 TO 35 (PLUS 3), 8 MONTHS 5 DAYS
     Route: 048
     Dates: start: 20130310, end: 20131113
  5. XELEVIA [Suspect]
     Active Substance: SITAGLIPTIN PHOSPHATE
     Indication: TYPE 2 DIABETES MELLITUS
     Dosage: PREGNANCY WEEK 0 TO 6 (PLUS 4), 1 MONTH 16 DAYS 12 HOURS
     Route: 048
     Dates: start: 20130310, end: 20130425
  6. RAMIPRIL. [Suspect]
     Active Substance: RAMIPRIL
     Indication: HYPERTENSION
     Dosage: PREGNANCY WEEK 0?6 (PLUS 4), 1 MONTH 16 DAYS
     Route: 048
     Dates: start: 20130310, end: 20130425
  7. INSULIN [Suspect]
     Active Substance: INSULIN NOS
     Indication: PRODUCT USED FOR UNKNOWN INDICATION
     Dosage: PREGNANCY WEEK 0 TO 35 (PLUS 3)
     Route: 065

REACTIONS (4)
  - Caesarean section [Unknown]
  - Exposure during pregnancy [Recovered/Resolved]
  - Placental insufficiency [Unknown]
  - Polyhydramnios [Unknown]
